FAERS Safety Report 10540751 (Version 1)
Quarter: 2014Q4

REPORT INFORMATION
  Report Type: Spontaneous
  Country: ZA (occurrence: None)
  Receive Date: 20141023
  Receipt Date: 20141023
  Transmission Date: 20150529
  Serious: No
  Sender: FDA-Public Use
  Company Number: None

PATIENT
  Age: 54 Year
  Sex: Female
  Weight: 61.4 kg

DRUGS (2)
  1. CISPLATIN. [Suspect]
     Active Substance: CISPLATIN
     Dosage: CHEMOTHERAPY DELAYED, REASSESS BLOOD RESULTS ON 09/29/2014
     Dates: start: 20140929
  2. TRIBUSS [Concomitant]

REACTIONS (4)
  - Dysuria [None]
  - Fluid intake reduced [None]
  - Heart rate decreased [None]
  - Lymphocyte count decreased [None]

NARRATIVE: CASE EVENT DATE: 20140923
